FAERS Safety Report 9154537 (Version 2)
Quarter: 2013Q1

REPORT INFORMATION
  Report Type: Report from Study
  Country: CH (occurrence: CH)
  Receive Date: 20130311
  Receipt Date: 20130328
  Transmission Date: 20140127
  Serious: Yes (Life-Threatening, Hospitalization, Other)
  Sender: FDA-Public Use
  Company Number: CH-GENZYME-CLOF-1002516

PATIENT
  Age: 62 None
  Sex: Male
  Weight: 70 kg

DRUGS (6)
  1. EVOLTRA [Suspect]
     Indication: ACUTE MYELOID LEUKAEMIA
     Dosage: 19 MG, UNK (DAY 1 TO DAY 5)
     Route: 042
     Dates: start: 20130124, end: 20130128
  2. IDARUBICIN [Suspect]
     Indication: ACUTE MYELOID LEUKAEMIA
     Dosage: 23 MGQ, UN K(DAY 1 TO DAY 3)
     Route: 042
     Dates: start: 20130124, end: 20130126
  3. CYTARABINE [Suspect]
     Indication: ACUTE MYELOID LEUKAEMIA
     Dosage: 380 MG, UNK (DAY 1 TO DAY 7)
     Route: 042
     Dates: start: 20130124, end: 20130130
  4. VANCOMYCIN [Suspect]
     Indication: PRODUCT USED FOR UNKNOWN INDICATION
     Dosage: 2500 MG, UNK
     Route: 042
  5. TRANEXAMIC ACID [Suspect]
     Indication: PRODUCT USED FOR UNKNOWN INDICATION
     Dosage: UNK
     Route: 042
     Dates: start: 20130210
  6. SULPHAMETHOXAZOLE [Suspect]
     Indication: PRODUCT USED FOR UNKNOWN INDICATION
     Dosage: 1200 MG, UNK
     Route: 042
     Dates: start: 20130211, end: 20130218

REACTIONS (8)
  - Septic shock [Unknown]
  - Bone marrow failure [Not Recovered/Not Resolved]
  - Renal failure [Unknown]
  - Pleural effusion [Unknown]
  - Pneumonia [Unknown]
  - Hypertension [Unknown]
  - Respiratory failure [Recovered/Resolved]
  - Bronchopneumonia [Not Recovered/Not Resolved]
